FAERS Safety Report 8796159 (Version 2)
Quarter: 2012Q4

REPORT INFORMATION
  Report Type: 
  Country: US (occurrence: US)
  Receive Date: 20120920
  Receipt Date: 20121112
  Transmission Date: 20130627
  Serious: Yes (Other)
  Sender: FDA-Public Use
  Company Number: US-PFIZER INC-2012230122

PATIENT
  Sex: Female
  Weight: 50.8 kg

DRUGS (1)
  1. DEPO-PROVERA [Suspect]
     Indication: DYSMENORRHEA
     Dosage: UNK
     Route: 030

REACTIONS (6)
  - Incorrect route of drug administration [Unknown]
  - Injection site movement impairment [Unknown]
  - Injection site reaction [Unknown]
  - Injection site pain [Unknown]
  - Abdominal pain [Unknown]
  - Drug administration error [Unknown]
